FAERS Safety Report 4828708-4 (Version None)
Quarter: 2005Q4

REPORT INFORMATION
  Report Type: 
  Country: None (occurrence: None)
  Receive Date: 20051115
  Receipt Date: 20051108
  Transmission Date: 20060501
  Serious: Yes (Hospitalization, Other)
  Sender: FDA-Public Use
  Company Number: US-MERCK-0511USA01657

PATIENT
  Age: 54 Year
  Sex: Female
  Weight: 75 kg

DRUGS (5)
  1. VIOXX [Suspect]
     Indication: ARTHRITIS
     Route: 048
     Dates: start: 20000101, end: 20030101
  2. VIOXX [Suspect]
     Indication: BACK PAIN
     Route: 048
     Dates: start: 20000101, end: 20030101
  3. LIPITOR [Concomitant]
     Route: 065
  4. LOPRESSOR [Concomitant]
     Route: 065
  5. PAXIL [Concomitant]
     Route: 065

REACTIONS (2)
  - GASTRIC HAEMORRHAGE [None]
  - MYOCARDIAL INFARCTION [None]
